FAERS Safety Report 19813766 (Version 1)
Quarter: 2021Q3

REPORT INFORMATION
  Report Type: Spontaneous
  Country: GB (occurrence: GB)
  Receive Date: 20210910
  Receipt Date: 20210910
  Transmission Date: 20211014
  Serious: Yes (Disabling, Other)
  Sender: FDA-Public Use
  Company Number: GB-MYLANLABS-2021M1059037

PATIENT
  Age: 80 Year
  Sex: Female
  Weight: 76.2 kg

DRUGS (2)
  1. BISOPROLOL [Suspect]
     Active Substance: BISOPROLOL
     Indication: HYPERTENSION
     Dosage: 10 MILLIGRAM
     Route: 048
     Dates: start: 2018, end: 2021
  2. BISOPROLOL [Suspect]
     Active Substance: BISOPROLOL
     Indication: ILL-DEFINED DISORDER

REACTIONS (2)
  - Incorrect product administration duration [Unknown]
  - Amnesia [Not Recovered/Not Resolved]

NARRATIVE: CASE EVENT DATE: 2018
